FAERS Safety Report 25931430 (Version 1)
Quarter: 2025Q4

REPORT INFORMATION
  Report Type: Report from Study
  Country: JP (occurrence: JP)
  Receive Date: 20251016
  Receipt Date: 20251016
  Transmission Date: 20260117
  Serious: Yes (Other)
  Sender: GUERBET
  Company Number: JP-GUERBETG_JAPAN-JP-20250169

PATIENT
  Age: 79 Year
  Sex: Male

DRUGS (3)
  1. LIPIODOL [Suspect]
     Active Substance: ETHIODIZED OIL
     Indication: Therapeutic embolisation
     Dosage: GLUE WAS PREPARED BY MIXING .OF N - BUTYL CYANOACRYLATE AND LIPIODOL
     Route: 013
  2. UNSPECIFIED INGREDIENT [Suspect]
     Active Substance: UNSPECIFIED INGREDIENT
     Indication: Therapeutic embolisation
     Dosage: GLUE WAS PREPARED BY MIXING .OF N - BUTYL CYANOACRYLATE AND LIPIODOL
     Route: 013
  3. EDOXABAN [Concomitant]
     Active Substance: EDOXABAN
     Indication: Anticoagulant therapy

REACTIONS (1)
  - Aneurysm ruptured [Unknown]
